FAERS Safety Report 4701042-9 (Version None)
Quarter: 2005Q2

REPORT INFORMATION
  Report Type: 
  Country: None (occurrence: None)
  Receive Date: 20050624
  Receipt Date: 20041004
  Transmission Date: 20051028
  Serious: Yes (Hospitalization)
  Sender: FDA-Public Use
  Company Number: 382433

PATIENT
  Age: 78 Year
  Sex: Female
  Weight: 63.5 kg

DRUGS (3)
  1. XELODA [Suspect]
     Indication: BREAST CANCER
     Dosage: 1500 MG DAILY ORAL
     Route: 048
     Dates: start: 20040915, end: 20041005
  2. AREDIA [Concomitant]
  3. PREVACID [Concomitant]

REACTIONS (2)
  - ATRIAL FIBRILLATION [None]
  - NAUSEA [None]
